FAERS Safety Report 17029991 (Version 3)
Quarter: 2020Q3

REPORT INFORMATION
  Report Type: Spontaneous
  Country: US (occurrence: US)
  Receive Date: 20191114
  Receipt Date: 20200908
  Transmission Date: 20201102
  Serious: No
  Sender: FDA-Public Use
  Company Number: US-GLAXOSMITHKLINE-US2019AMR201829

PATIENT
  Sex: Female
  Weight: 139.23 kg

DRUGS (2)
  1. NUCALA [Suspect]
     Active Substance: MEPOLIZUMAB
     Dosage: 100 MG, UNK
     Route: 065
     Dates: start: 20190919
  2. NUCALA [Suspect]
     Active Substance: MEPOLIZUMAB
     Indication: ASTHMA
     Dosage: 100 MG, UNK
     Route: 065
     Dates: start: 20180710

REACTIONS (1)
  - Exposure during pregnancy [Unknown]
